FAERS Safety Report 8231146-8 (Version None)
Quarter: 2012Q1

REPORT INFORMATION
  Report Type: 
  Country: None (occurrence: None)
  Receive Date: 20120323
  Receipt Date: 20120319
  Transmission Date: 20120608
  Serious: Yes (Other)
  Sender: FDA-Public Use
  Company Number: US-PFIZER INC-2012071451

PATIENT
  Sex: Female
  Weight: 59 kg

DRUGS (2)
  1. CALCIUM [Concomitant]
     Indication: SPINAL OSTEOARTHRITIS
     Dosage: UNK
  2. AROMASIN [Suspect]
     Indication: BREAST CANCER FEMALE
     Dosage: 25 MG, DAILY
     Dates: start: 20110701

REACTIONS (5)
  - FALL [None]
  - HOT FLUSH [None]
  - GROIN PAIN [None]
  - ARTHRALGIA [None]
  - JOINT STIFFNESS [None]
